FAERS Safety Report 8845869 (Version 1)
Quarter: 2012Q4

REPORT INFORMATION
  Report Type: 
  Country: US (occurrence: US)
  Receive Date: 20121017
  Receipt Date: 20121017
  Transmission Date: 20130627
  Serious: Yes (Hospitalization, Other)
  Sender: FDA-Public Use
  Company Number: US-ROCHE-GNE229150

PATIENT
  Age: 5 Year
  Sex: Male
  Weight: 32.54 kg

DRUGS (1)
  1. NUTROPIN AQ [Suspect]
     Indication: PRADER-WILLI SYNDROME
     Dosage: 0.7 mg, 7/Week
     Route: 058
     Dates: start: 20010131

REACTIONS (2)
  - Apnoea [Unknown]
  - Respiratory arrest [Unknown]
